FAERS Safety Report 5737397-6 (Version None)
Quarter: 2008Q2

REPORT INFORMATION
  Report Type: 
  Country: None (occurrence: None)
  Receive Date: 20080514
  Receipt Date: 20080227
  Transmission Date: 20081010
  Serious: No
  Sender: FDA-Public Use
  Company Number: US-BRISTOL-MYERS SQUIBB COMPANY-14062327

PATIENT
  Age: 53 Year
  Sex: Female
  Weight: 76 kg

DRUGS (8)
  1. IXEMPRA KIT [Suspect]
     Indication: BREAST CANCER METASTATIC
     Dosage: SUBSEQUENT DOSES GIVEN ON 28-NOV-2007, 18-DEC-2007, AND 28-JAN-2008.
     Route: 042
     Dates: start: 20071102
  2. ZANTAC [Concomitant]
  3. BENADRYL [Concomitant]
  4. ALOXI [Concomitant]
  5. DECADRON [Concomitant]
  6. TYLENOL [Concomitant]
  7. HERCEPTIN [Concomitant]
  8. ZOMETA [Concomitant]
     Dates: start: 20071218

REACTIONS (1)
  - PAIN IN JAW [None]
